FAERS Safety Report 11698729 (Version 2)
Quarter: 2015Q4

REPORT INFORMATION
  Report Type: Spontaneous
  Country: US (occurrence: US)
  Receive Date: 20151104
  Receipt Date: 20151110
  Transmission Date: 20160304
  Serious: No
  Sender: FDA-Public Use
  Company Number: US-ELI_LILLY_AND_COMPANY-US201101000956

PATIENT
  Age: 54 Year
  Sex: Female

DRUGS (6)
  1. FORTEO [Suspect]
     Active Substance: TERIPARATIDE
     Dosage: 20 UG, QD
     Route: 065
  2. FORTEO [Suspect]
     Active Substance: TERIPARATIDE
     Dosage: 20 UG, QD
  3. FORTEO [Suspect]
     Active Substance: TERIPARATIDE
     Dosage: 20 UG, QD
  4. FORTEO [Suspect]
     Active Substance: TERIPARATIDE
     Dosage: 20 UG, QD
  5. FORTEO [Suspect]
     Active Substance: TERIPARATIDE
     Dosage: 20 UG, QD
     Route: 065
  6. FORTEO [Suspect]
     Active Substance: TERIPARATIDE
     Indication: OSTEOPOROSIS
     Dosage: 20 UG, QD
     Dates: start: 20110101

REACTIONS (12)
  - Trigger finger [Not Recovered/Not Resolved]
  - Abdominal discomfort [Unknown]
  - Pain in extremity [Unknown]
  - Accidental overdose [Recovered/Resolved]
  - Grip strength decreased [Unknown]
  - Joint swelling [Not Recovered/Not Resolved]
  - Vitamin D deficiency [Recovered/Resolved]
  - Peripheral swelling [Unknown]
  - Pain [Unknown]
  - Injection site rash [Unknown]
  - Arthralgia [Not Recovered/Not Resolved]
  - Movement disorder [Unknown]

NARRATIVE: CASE EVENT DATE: 20110101
